FAERS Safety Report 15088547 (Version 3)
Quarter: 2018Q3

REPORT INFORMATION
  Report Type: Spontaneous
  Country: NL (occurrence: NL)
  Receive Date: 20180629
  Receipt Date: 20180805
  Transmission Date: 20181010
  Serious: Yes (Other)
  Sender: FDA-Public Use
  Company Number: NL-CONCORDIA PHARMACEUTICALS INC.-E2B_00013183

PATIENT
  Age: 57 Year
  Sex: Female

DRUGS (8)
  1. FUCIDIN CREME [Concomitant]
     Dosage: 20MG/G ON INGUINAL REGION
     Dates: start: 20180502
  2. TRANYLCYPROMINE [Suspect]
     Active Substance: TRANYLCYPROMINE
     Route: 048
     Dates: start: 20180507
  3. ATENOLOL. [Concomitant]
     Active Substance: ATENOLOL
     Dates: start: 20170331
  4. TRANYLCYPROMINE [Suspect]
     Active Substance: TRANYLCYPROMINE
     Route: 048
     Dates: start: 20180607
  5. TRANYLCYPROMINE [Suspect]
     Active Substance: TRANYLCYPROMINE
     Indication: DEPRESSIVE SYMPTOM
     Dosage: IN THE MORNING AND AROUND NOON
     Route: 048
     Dates: start: 20180528
  6. OXAZEPAM. [Concomitant]
     Active Substance: OXAZEPAM
     Dosage: 10MG DAILY IF NEEDED
  7. TRANYLCYPROMINE [Suspect]
     Active Substance: TRANYLCYPROMINE
     Dosage: IN JUL/2018
     Route: 048
     Dates: start: 20180701
  8. TRANYLCYPROMINE [Suspect]
     Active Substance: TRANYLCYPROMINE
     Dosage: 30 MG IN THE MORNING AND 20 MG AROUND NOON
     Route: 048
     Dates: start: 20180604

REACTIONS (6)
  - Heart rate decreased [Recovered/Resolved]
  - Hypertensive crisis [Recovered/Resolved]
  - Malaise [Unknown]
  - Headache [Recovered/Resolved]
  - Nausea [Recovered/Resolved]
  - Blood pressure increased [Recovered/Resolved]

NARRATIVE: CASE EVENT DATE: 20180602
